FAERS Safety Report 7114557-3 (Version None)
Quarter: 2010Q4

REPORT INFORMATION
  Report Type: 
  Country: None (occurrence: None)
  Receive Date: 20101120
  Receipt Date: 20101115
  Transmission Date: 20110411
  Serious: Yes (Death)
  Sender: FDA-Public Use
  Company Number: VE-PFIZER INC-2010140457

PATIENT
  Age: 78 Year
  Sex: Female

DRUGS (3)
  1. NORVASC [Suspect]
     Indication: HYPERTENSION
     Dosage: 5 MG, 1X/DAY
     Route: 048
     Dates: start: 20070101
  2. VITAMINE C [Concomitant]
     Indication: IMMUNOMODULATORY THERAPY
  3. FOLIC ACID [Concomitant]
     Indication: IMMUNOMODULATORY THERAPY

REACTIONS (1)
  - RESPIRATORY ARREST [None]
